FAERS Safety Report 12473703 (Version 1)
Quarter: 2016Q2

REPORT INFORMATION
  Report Type: Spontaneous
  Country: US (occurrence: US)
  Receive Date: 20160616
  Receipt Date: 20160616
  Transmission Date: 20160815
  Serious: No
  Sender: FDA-Public Use
  Company Number: US-TARO-2015TAR01129

PATIENT
  Age: 2 Year
  Sex: Female

DRUGS (2)
  1. CETIRIZINE HCL [Suspect]
     Active Substance: CETIRIZINE HYDROCHLORIDE
     Dosage: 2 ML, TWICE
     Dates: start: 20151206, end: 20151206
  2. CETIRIZINE HCL [Suspect]
     Active Substance: CETIRIZINE HYDROCHLORIDE
     Dosage: 5 ML, ONCE
     Route: 048
     Dates: start: 20151206, end: 20151206

REACTIONS (2)
  - Psychomotor hyperactivity [Unknown]
  - Accidental overdose [Unknown]

NARRATIVE: CASE EVENT DATE: 20151206
